FAERS Safety Report 10261603 (Version 2)
Quarter: 2014Q3

REPORT INFORMATION
  Report Type: Report from Study
  Country: US (occurrence: US)
  Receive Date: 20140626
  Receipt Date: 20140728
  Transmission Date: 20150326
  Serious: Yes (Hospitalization)
  Sender: FDA-Public Use
  Company Number: US-SA-2014SA081045

PATIENT
  Age: 77 Year
  Sex: Male

DRUGS (8)
  1. MEDROL [Concomitant]
     Active Substance: METHYLPREDNISOLONE
  2. HMG COA REDUCTASE INHIBITORS [Concomitant]
     Active Substance: UNSPECIFIED INGREDIENT
  3. LIPITOR [Concomitant]
     Active Substance: ATORVASTATIN CALCIUM
  4. VYTORIN [Concomitant]
     Active Substance: EZETIMIBE\SIMVASTATIN
  5. LANTUS [Suspect]
     Active Substance: INSULIN GLARGINE
     Indication: TYPE 2 DIABETES MELLITUS
     Dosage: 60 UNITS AM AND 60 UNITS PM DOSE:60 UNIT(S)
     Route: 058
     Dates: start: 20140604
  6. CRESTOR [Concomitant]
     Active Substance: ROSUVASTATIN CALCIUM
  7. LIVALO [Concomitant]
     Active Substance: PITAVASTATIN CALCIUM
  8. ZOCOR [Concomitant]
     Active Substance: SIMVASTATIN

REACTIONS (2)
  - Hospitalisation [Unknown]
  - Drug administration error [Unknown]
